FAERS Safety Report 15493629 (Version 1)
Quarter: 2018Q4

REPORT INFORMATION
  Report Type: Spontaneous
  Country: US (occurrence: US)
  Receive Date: 20181012
  Receipt Date: 20181012
  Transmission Date: 20190205
  Serious: Yes (Death)
  Sender: FDA-Public Use
  Company Number: None

PATIENT
  Age: 75 Year
  Sex: Male

DRUGS (9)
  1. TACROLIMUS. [Concomitant]
     Active Substance: TACROLIMUS
  2. CLOPIDOGREL [Concomitant]
     Active Substance: CLOPIDOGREL BISULFATE
  3. GABAPENTIN. [Concomitant]
     Active Substance: GABAPENTIN
  4. METOPROLOL TARTRATE. [Concomitant]
     Active Substance: METOPROLOL TARTRATE
  5. SENSIPAR [Suspect]
     Active Substance: CINACALCET HYDROCHLORIDE
     Indication: RENAL TRANSPLANT
     Route: 048
     Dates: start: 20180731
  6. DIVALPROEX [Concomitant]
     Active Substance: DIVALPROEX SODIUM
  7. PREDNISONE. [Concomitant]
     Active Substance: PREDNISONE
  8. ESOMEPRA MAG [Concomitant]
  9. NORTRIPTYLIN [Concomitant]
     Active Substance: NORTRIPTYLINE

REACTIONS (1)
  - Death [None]

NARRATIVE: CASE EVENT DATE: 20180923
